FAERS Safety Report 18955373 (Version 2)
Quarter: 2021Q2

REPORT INFORMATION
  Report Type: Spontaneous
  Country: US (occurrence: US)
  Receive Date: 20210301
  Receipt Date: 20210527
  Transmission Date: 20210717
  Serious: Yes (Other)
  Sender: FDA-Public Use
  Company Number: US-ACS-001915

PATIENT
  Age: 101 Year
  Sex: Female

DRUGS (1)
  1. CEFEPIME [Suspect]
     Active Substance: CEFEPIME HYDROCHLORIDE
     Indication: OSTEOMYELITIS
     Dosage: DOSE REDUCED TO 2G/DAY
     Route: 065

REACTIONS (2)
  - Myoclonus [Recovered/Resolved]
  - Off label use [Recovered/Resolved]
